FAERS Safety Report 4933713-3 (Version None)
Quarter: 2006Q1

REPORT INFORMATION
  Report Type: 
  Country: None (occurrence: None)
  Receive Date: 20060126
  Receipt Date: 20051024
  Transmission Date: 20060701
  Serious: Yes (Other)
  Sender: FDA-Public Use
  Company Number: 21798

PATIENT
  Sex: Male

DRUGS (1)
  1. CLINDAMYCIN PHOSPHATE [Suspect]
     Indication: OSTEOMYELITIS
     Dosage: 900MG/Q 8HRS/IV
     Route: 042
     Dates: start: 20050921, end: 20050930

REACTIONS (1)
  - INFECTION [None]
